FAERS Safety Report 17810411 (Version 1)
Quarter: 2020Q2

REPORT INFORMATION
  Report Type: Spontaneous
  Country: IL (occurrence: IL)
  Receive Date: 20200520
  Receipt Date: 20200520
  Transmission Date: 20200714
  Serious: Yes (Other)
  Sender: FDA-Public Use
  Company Number: IL-BAXTER-2020BAX010172

PATIENT
  Age: 31 Year
  Sex: Female

DRUGS (4)
  1. CARBOPLATIN. [Suspect]
     Active Substance: CARBOPLATIN
     Indication: INVASIVE DUCTAL BREAST CARCINOMA
     Dosage: NAC: DDAC-TAXOL-CARBO REGIMEN
     Route: 065
  2. PACLITAXEL. [Suspect]
     Active Substance: PACLITAXEL
     Indication: INVASIVE DUCTAL BREAST CARCINOMA
     Dosage: NAC: DDAC-TAXOL-CARBO REGIMEN
     Route: 065
  3. DOXIL [Suspect]
     Active Substance: DOXORUBICIN HYDROCHLORIDE
     Indication: INVASIVE DUCTAL BREAST CARCINOMA
     Dosage: NAC: DDAC-TAXOL-CARBO REGIMEN
     Route: 065
  4. ENDOXAN-1G [Suspect]
     Active Substance: CYCLOPHOSPHAMIDE
     Indication: INVASIVE DUCTAL BREAST CARCINOMA
     Dosage: NAC: DDAC-TAXOL-CARBO REGIMEN
     Route: 065

REACTIONS (4)
  - Drug ineffective [Unknown]
  - Metastases to bone [Unknown]
  - Dyspnoea [Unknown]
  - Metastases to lung [Unknown]
